FAERS Safety Report 21285021 (Version 2)
Quarter: 2022Q4

REPORT INFORMATION
  Report Type: Report from Study
  Country: IL (occurrence: None)
  Receive Date: 20220902
  Receipt Date: 20221013
  Transmission Date: 20230113
  Serious: Yes (Other)
  Sender: FDA-Public Use
  Company Number: IL-Merck Healthcare KGaA-9335410

PATIENT
  Age: 34 Year
  Sex: Female

DRUGS (2)
  1. REBIF [Suspect]
     Active Substance: INTERFERON BETA-1A
     Indication: Multiple sclerosis
     Route: 058
     Dates: start: 20160131
  2. REBIF [Suspect]
     Active Substance: INTERFERON BETA-1A
     Dosage: RETURNED TO INJECT ON 06 JUL 2022.
     Dates: start: 20220706

REACTIONS (4)
  - Abortion spontaneous [Recovered/Resolved]
  - Menstruation delayed [Recovered/Resolved]
  - Product dose omission issue [Recovered/Resolved]
  - Maternal exposure during pregnancy [Recovered/Resolved]

NARRATIVE: CASE EVENT DATE: 20220101
